FAERS Safety Report 7007530-7 (Version None)
Quarter: 2010Q3

REPORT INFORMATION
  Report Type: 
  Country: None (occurrence: None)
  Receive Date: 20100915
  Receipt Date: 20100910
  Transmission Date: 20110219
  Serious: Yes (Hospitalization)
  Sender: FDA-Public Use
  Company Number: 2010SP047135

PATIENT
  Sex: Female

DRUGS (1)
  1. LINESSA (DESOGESTREL/ETHINYLESTRADIOL /00570801/) [Suspect]
     Indication: PRODUCT USED FOR UNKNOWN INDICATION
     Dosage: PO
     Route: 048

REACTIONS (1)
  - UNEVALUABLE EVENT [None]
